FAERS Safety Report 9736506 (Version 1)
Quarter: 2013Q4

REPORT INFORMATION
  Report Type: Spontaneous
  Country: FR (occurrence: FR)
  Receive Date: 20131206
  Receipt Date: 20131206
  Transmission Date: 20140711
  Serious: Yes (Life-Threatening, Disabling, Other)
  Sender: FDA-Public Use
  Company Number: FR-PFIZER INC-2013345360

PATIENT
  Age: 26 Year
  Sex: Male
  Weight: 90 kg

DRUGS (2)
  1. ADVIL [Suspect]
     Indication: MIGRAINE
     Dosage: 400 MG, INTERMITTENTLY INTAKE
     Route: 048
     Dates: end: 20100608
  2. CARTREX [Suspect]
     Indication: ANKYLOSING SPONDYLITIS
     Dosage: 2 DF, 1X/DAY
     Route: 048
     Dates: end: 20100606

REACTIONS (5)
  - Oesophageal rupture [Recovered/Resolved with Sequelae]
  - Mediastinitis [Unknown]
  - Pneumothorax [Unknown]
  - Weight decreased [Unknown]
  - Respiratory disorder [Not Recovered/Not Resolved]
